FAERS Safety Report 7021988-9 (Version None)
Quarter: 2010Q3

REPORT INFORMATION
  Report Type: 
  Country: None (occurrence: None)
  Receive Date: 20100930
  Receipt Date: 20100924
  Transmission Date: 20110219
  Serious: Yes (Death)
  Sender: FDA-Public Use
  Company Number: JP-JNJFOC-20100603294

PATIENT
  Sex: Female
  Weight: 64 kg

DRUGS (23)
  1. DUROTEP [Suspect]
     Indication: ABDOMINAL PAIN LOWER
     Route: 062
  2. DUROTEP [Suspect]
     Route: 062
  3. DUROTEP [Suspect]
     Route: 062
  4. DUROTEP [Suspect]
     Route: 062
  5. DUROTEP [Suspect]
     Indication: CHEST PAIN
     Route: 062
  6. DUROTEP [Suspect]
     Route: 062
  7. DUROTEP [Suspect]
     Route: 062
  8. DUROTEP [Suspect]
     Route: 062
  9. DUROTEP [Suspect]
     Indication: CANCER PAIN
     Route: 062
  10. DUROTEP [Suspect]
     Route: 062
  11. DUROTEP [Suspect]
     Route: 062
  12. DUROTEP [Suspect]
     Route: 062
  13. OXINORM (OXYCODONE HYDROCHLORIDE) [Concomitant]
     Indication: ANXIETY
     Route: 048
  14. OXINORM (OXYCODONE HYDROCHLORIDE) [Concomitant]
     Route: 048
  15. OXINORM (OXYCODONE HYDROCHLORIDE) [Concomitant]
     Route: 048
  16. OXINORM (OXYCODONE HYDROCHLORIDE) [Concomitant]
     Indication: ABDOMINAL PAIN LOWER
     Route: 048
  17. OXINORM (OXYCODONE HYDROCHLORIDE) [Concomitant]
     Route: 048
  18. OXINORM (OXYCODONE HYDROCHLORIDE) [Concomitant]
     Route: 048
  19. OXINORM (OXYCODONE HYDROCHLORIDE) [Concomitant]
     Indication: CHEST PAIN
     Route: 048
  20. OXINORM (OXYCODONE HYDROCHLORIDE) [Concomitant]
     Route: 048
  21. OXINORM (OXYCODONE HYDROCHLORIDE) [Concomitant]
     Route: 048
  22. PAXIL [Concomitant]
     Indication: CHEST PAIN
     Route: 048
  23. PAXIL [Concomitant]
     Indication: ANXIETY
     Route: 048

REACTIONS (14)
  - ASPIRATION [None]
  - BACK PAIN [None]
  - DEATH [None]
  - DEPRESSION [None]
  - DYSPHONIA [None]
  - DYSPNOEA [None]
  - EXPOSURE TO EXTREME TEMPERATURE [None]
  - HEADACHE [None]
  - INSOMNIA [None]
  - MALAISE [None]
  - OEDEMA PERIPHERAL [None]
  - PAIN [None]
  - PAIN IN EXTREMITY [None]
  - SOMNOLENCE [None]
